FAERS Safety Report 8226335-2 (Version None)
Quarter: 2012Q1

REPORT INFORMATION
  Report Type: 
  Country: None (occurrence: None)
  Receive Date: 20120321
  Receipt Date: 20120309
  Transmission Date: 20120608
  Serious: Yes (Hospitalization, Other)
  Sender: FDA-Public Use
  Company Number: US-ROCHE-792173

PATIENT
  Sex: Female
  Weight: 61.29 kg

DRUGS (6)
  1. PERCOCET [Concomitant]
  2. ACCUTANE [Suspect]
     Indication: ACNE
     Route: 065
     Dates: start: 19840101, end: 19850101
  3. LOMOTIL [Concomitant]
  4. SEROQUEL XR [Concomitant]
  5. VIOXX [Concomitant]
  6. XANAX [Concomitant]

REACTIONS (7)
  - DEPRESSION [None]
  - CROHN'S DISEASE [None]
  - OSTEONECROSIS [None]
  - INFLAMMATORY BOWEL DISEASE [None]
  - EMOTIONAL DISTRESS [None]
  - UVEITIS [None]
  - COLITIS ULCERATIVE [None]
